FAERS Safety Report 6223712-6 (Version None)
Quarter: 2009Q2

REPORT INFORMATION
  Report Type: 
  Country: None (occurrence: None)
  Receive Date: 20090611
  Receipt Date: 20090306
  Transmission Date: 20091009
  Serious: Yes (Other)
  Sender: FDA-Public Use
  Company Number: US-ABBOTT-08P-163-0493018-00

PATIENT
  Sex: Female
  Weight: 83.082 kg

DRUGS (9)
  1. HUMIRA [Suspect]
     Indication: ARTHROPATHY
     Route: 058
     Dates: start: 20060101, end: 20080601
  2. HUMIRA [Suspect]
     Indication: PSORIASIS
  3. HUMIRA [Suspect]
     Indication: PSORIATIC ARTHROPATHY
  4. ZYRTEC [Concomitant]
     Indication: DRUG USE FOR UNKNOWN INDICATION
     Dosage: TWICE DAILY
     Route: 048
  5. CLARITIN [Concomitant]
     Indication: DRUG USE FOR UNKNOWN INDICATION
     Dosage: TWICE DAILY
  6. PREDNISONE [Concomitant]
     Indication: DRUG USE FOR UNKNOWN INDICATION
     Dosage: X 3 D, 20MG NEXT 3 D EVERY OTHER WEEK
     Route: 048
     Dates: start: 20080801
  7. GLUCOPHAGE [Concomitant]
     Indication: HYPERGLYCAEMIA
     Route: 048
  8. GLYBURIDE [Concomitant]
     Indication: HYPERGLYCAEMIA
  9. FOSINOPRIL SODIUM [Concomitant]
     Indication: HYPERTENSION
     Route: 048

REACTIONS (6)
  - FATIGUE [None]
  - HODGKIN'S DISEASE [None]
  - MICROCYTIC ANAEMIA [None]
  - PSORIASIS [None]
  - RED BLOOD CELL SEDIMENTATION RATE INCREASED [None]
  - SINUS CONGESTION [None]
